FAERS Safety Report 20886833 (Version 3)
Quarter: 2022Q3

REPORT INFORMATION
  Report Type: Report from Study
  Country: CN (occurrence: CN)
  Receive Date: 20220528
  Receipt Date: 20220701
  Transmission Date: 20221026
  Serious: Yes (Death)
  Sender: FDA-Public Use
  Company Number: CN-BAYER-2022A074273

PATIENT
  Age: 77 Year
  Sex: Female
  Weight: 41 kg

DRUGS (26)
  1. RIVAROXABAN [Suspect]
     Active Substance: RIVAROXABAN
     Indication: Coronary artery disease
     Dosage: 2.5 MG, BID
     Route: 048
     Dates: start: 20210811, end: 20220301
  2. RIVAROXABAN [Suspect]
     Active Substance: RIVAROXABAN
     Indication: Peripheral arterial occlusive disease
     Route: 048
  3. RIVAROXABAN [Suspect]
     Active Substance: RIVAROXABAN
     Indication: Cardiovascular event prophylaxis
     Route: 048
  4. ASPIRIN [Suspect]
     Active Substance: ASPIRIN
     Indication: Coronary artery disease
     Dosage: 100 MG, QD
     Route: 048
     Dates: start: 20180730, end: 20220301
  5. ASPIRIN [Suspect]
     Active Substance: ASPIRIN
     Indication: Peripheral arterial occlusive disease
  6. ASPIRIN [Suspect]
     Active Substance: ASPIRIN
     Indication: Cardiovascular event prophylaxis
  7. CILOSTAZOL [Concomitant]
     Active Substance: CILOSTAZOL
     Dosage: 100 MG, BID
     Dates: start: 20190802, end: 20210810
  8. PANTOPRAZOLE SODIUM [Concomitant]
     Active Substance: PANTOPRAZOLE SODIUM
     Dosage: 80 MG, BID
     Dates: start: 20210425, end: 20210428
  9. HERBALS [Concomitant]
     Active Substance: HERBALS
     Dosage: 200 MG, QD
     Dates: start: 20210425, end: 20210428
  10. HEPARIN SODIUM [Concomitant]
     Active Substance: HEPARIN SODIUM
     Dosage: 3075 IU, BID
     Dates: start: 20210425, end: 20210428
  11. HYDROCHLOROTHIAZIDE [Concomitant]
     Active Substance: HYDROCHLOROTHIAZIDE
     Dosage: 25 MG, TID
     Dates: start: 20210601, end: 20220308
  12. BERAPROST SODIUM [Concomitant]
     Active Substance: BERAPROST SODIUM
     Dosage: 40 UG, TID
     Dates: start: 20210425, end: 20220301
  13. SPIRONOLACTONE [Concomitant]
     Active Substance: SPIRONOLACTONE
     Dosage: 20 MG, BID
     Dates: start: 20190803, end: 20220308
  14. INDAPAMIDE\PERINDOPRIL [Concomitant]
     Active Substance: INDAPAMIDE\PERINDOPRIL
     Dosage: 1 DF, QD
     Dates: start: 20210428, end: 20220308
  15. NIFEDIPINE [Concomitant]
     Active Substance: NIFEDIPINE
     Dosage: 30 MG, QD
     Dates: start: 20210805, end: 20220308
  16. DIHYDROCODEINE;PARACETAMOL [Concomitant]
     Dosage: 500 MG, TID
     Dates: start: 20210427, end: 20220308
  17. IBUPROFEN [Concomitant]
     Active Substance: IBUPROFEN
     Dosage: 0.3 G, QD
     Dates: start: 20210706, end: 20220308
  18. ROSUVASTATIN CALCIUM [Concomitant]
     Active Substance: ROSUVASTATIN CALCIUM
     Dosage: 10 MG, QD
     Dates: start: 20210425, end: 20210428
  19. INSULIN HUMAN [Concomitant]
     Active Substance: INSULIN HUMAN
     Dosage: 14 IU, QD
     Dates: start: 2011, end: 20220301
  20. INSULIN HUMAN [Concomitant]
     Active Substance: INSULIN HUMAN
     Dosage: 14 IU, QD
     Dates: start: 2011, end: 20220301
  21. INSULIN HUMAN [Concomitant]
     Active Substance: INSULIN HUMAN
     Dosage: 10 IU, QD
     Dates: start: 2011, end: 20220301
  22. ALPROSTADIL [Concomitant]
     Active Substance: ALPROSTADIL
     Dosage: 10 UG, BID
     Dates: start: 20210425, end: 20210428
  23. PAPAVERINE [Concomitant]
     Active Substance: PAPAVERINE
     Dosage: 90 MG, BID
     Dates: start: 20210425, end: 20210428
  24. NADROPARIN CALCIUM [Concomitant]
     Active Substance: NADROPARIN CALCIUM
     Dosage: 4100 IU, BID
     Dates: start: 20210428, end: 20210428
  25. ATORVASTATIN CALCIUM [Concomitant]
     Active Substance: ATORVASTATIN CALCIUM
     Dosage: 20 MG, QD
     Dates: start: 20190730, end: 20210424
  26. CLOPIDOGREL [Concomitant]
     Active Substance: CLOPIDOGREL BISULFATE
     Dosage: 75 MG, QD
     Dates: start: 20190730, end: 20210810

REACTIONS (1)
  - Death [Fatal]

NARRATIVE: CASE EVENT DATE: 20220308
